FAERS Safety Report 19792854 (Version 1)
Quarter: 2021Q3

REPORT INFORMATION
  Report Type: Spontaneous
  Country: FR (occurrence: FR)
  Receive Date: 20210906
  Receipt Date: 20210906
  Transmission Date: 20211014
  Serious: Yes (Hospitalization)
  Sender: FDA-Public Use
  Company Number: FR-PFIZER INC-202101094763

PATIENT
  Age: 60 Year
  Sex: Male
  Weight: 66 kg

DRUGS (1)
  1. OXALIPLATIN. [Suspect]
     Active Substance: OXALIPLATIN
     Indication: RECTAL CANCER
     Dosage: UNK
     Route: 042
     Dates: start: 20180717, end: 20210217

REACTIONS (4)
  - Face oedema [Recovered/Resolved]
  - Bronchospasm [Recovered/Resolved]
  - Hypersensitivity [Recovered/Resolved]
  - Erythema [Recovered/Resolved]

NARRATIVE: CASE EVENT DATE: 20210217
